FAERS Safety Report 18857116 (Version 1)
Quarter: 2021Q1

REPORT INFORMATION
  Report Type: Spontaneous
  Country: US (occurrence: US)
  Receive Date: 20210208
  Receipt Date: 20210208
  Transmission Date: 20210420
  Serious: Yes (Other)
  Sender: FDA-Public Use
  Company Number: US-ROCHE-2763611

PATIENT
  Sex: Male

DRUGS (1)
  1. OCREVUS [Suspect]
     Active Substance: OCRELIZUMAB
     Indication: MULTIPLE SCLEROSIS
     Dosage: 300 MG AT DAY 0 AND 15 THEN THEN 600 MG EVERY 26 WEEKS NEXT DOSE ON 06/SEP/2017, 23/AUG/2018, 28/FEB
     Route: 042
     Dates: start: 20170823, end: 20210203

REACTIONS (4)
  - Intentional product misuse [Unknown]
  - Off label use [Unknown]
  - Platelet disorder [Unknown]
  - Epilepsy [Unknown]
